FAERS Safety Report 5633484-1 (Version None)
Quarter: 2008Q1

REPORT INFORMATION
  Report Type: 
  Country: None (occurrence: None)
  Receive Date: 20080221
  Receipt Date: 20080213
  Transmission Date: 20080703
  Serious: Yes (Death, Hospitalization)
  Sender: FDA-Public Use
  Company Number: PL-ROCHE-547427

PATIENT
  Sex: Male

DRUGS (2)
  1. CYMEVENE [Suspect]
     Dosage: DURATION 10-14 DAYS
     Route: 065
  2. VALCYTE [Suspect]
     Dosage: OTHER INDICATION PREVENTION AFTER CARDIAC GRAFT. DOSAGE REGIMEN 2X450 MG
     Route: 048

REACTIONS (2)
  - CARDIAC FAILURE [None]
  - CYTOMEGALOVIRUS INFECTION [None]
